FAERS Safety Report 15641178 (Version 3)
Quarter: 2019Q1

REPORT INFORMATION
  Report Type: Spontaneous
  Country: US (occurrence: US)
  Receive Date: 20181120
  Receipt Date: 20190221
  Transmission Date: 20190417
  Serious: No
  Sender: FDA-Public Use
  Company Number: US-ACTELION-A-NJ2018-181870

PATIENT
  Age: 40 Year
  Sex: Female
  Weight: 70.3 kg

DRUGS (2)
  1. OPSUMIT [Suspect]
     Active Substance: MACITENTAN
     Indication: PULMONARY ARTERIAL HYPERTENSION
     Dosage: 10 MG, QD
     Route: 048
  2. WARFARIN [Concomitant]
     Active Substance: WARFARIN

REACTIONS (9)
  - Injury corneal [Unknown]
  - Corneal irritation [Unknown]
  - Burning sensation [Unknown]
  - Inflammatory bowel disease [Unknown]
  - Cough [Unknown]
  - Neuralgia [Unknown]
  - Throat tightness [Unknown]
  - Chest discomfort [Unknown]
  - Dyspnoea [Unknown]
